FAERS Safety Report 6197157-1 (Version None)
Quarter: 2009Q2

REPORT INFORMATION
  Report Type: 
  Country: None (occurrence: None)
  Receive Date: 20090520
  Receipt Date: 20090513
  Transmission Date: 20091009
  Serious: Yes (Other)
  Sender: FDA-Public Use
  Company Number: ES-GENENTECH-283267

PATIENT
  Age: 56 Year
  Sex: Female

DRUGS (2)
  1. AVASTIN [Suspect]
     Indication: BREAST CANCER
     Dosage: 840 MG, Q21D
     Route: 042
     Dates: start: 20080909, end: 20081119
  2. TAXOTERE [Suspect]
     Indication: BREAST CANCER
     Dosage: 115 MG, Q21D
     Route: 042
     Dates: start: 20080909, end: 20081119

REACTIONS (3)
  - ASCITES [None]
  - GENERALISED OEDEMA [None]
  - PLEURAL EFFUSION [None]
